FAERS Safety Report 7955553-3 (Version None)
Quarter: 2011Q4

REPORT INFORMATION
  Report Type: 
  Country: None (occurrence: None)
  Receive Date: 20111202
  Receipt Date: 20111125
  Transmission Date: 20120403
  Serious: Yes (Other)
  Sender: FDA-Public Use
  Company Number: TH-ROCHE-799877

PATIENT
  Sex: Female

DRUGS (7)
  1. MIRCERA [Suspect]
     Indication: NEPHROGENIC ANAEMIA
     Route: 058
     Dates: start: 20100331, end: 20101215
  2. FOLIC ACID [Concomitant]
  3. RECORMON [Suspect]
     Route: 058
     Dates: start: 20080919, end: 20100304
  4. RECORMON [Suspect]
     Indication: NEPHROGENIC ANAEMIA
     Route: 058
  5. MIRCERA [Suspect]
     Route: 058
     Dates: start: 20110116, end: 20110830
  6. CALCIUM CARBONATE [Concomitant]
  7. LIPITOR [Concomitant]

REACTIONS (2)
  - APLASIA PURE RED CELL [None]
  - ANAEMIA HAEMOLYTIC AUTOIMMUNE [None]
